FAERS Safety Report 19083410 (Version 1)
Quarter: 2021Q2

REPORT INFORMATION
  Report Type: Spontaneous
  Country: NO (occurrence: NO)
  Receive Date: 20210401
  Receipt Date: 20210401
  Transmission Date: 20210717
  Serious: Yes (Life-Threatening, Hospitalization, Disabling, Other)
  Sender: FDA-Public Use
  Company Number: NO-GLAXOSMITHKLINE-NO2021072380

PATIENT
  Sex: Female
  Weight: 80 kg

DRUGS (3)
  1. LAMICTAL [Suspect]
     Active Substance: LAMOTRIGINE
     Indication: EPILEPSY
     Dosage: 100 MG IN THE MORNING
     Route: 048
     Dates: start: 2008, end: 2009
  2. CERAZETTE (DESOGESTREL) [Concomitant]
     Active Substance: DESOGESTREL
     Indication: CONTRACEPTION
     Dosage: UNK
     Route: 065
     Dates: start: 2006
  3. LAMICTAL [Suspect]
     Active Substance: LAMOTRIGINE
     Indication: MOOD ALTERED

REACTIONS (7)
  - Sinus arrest [Unknown]
  - Bradycardia [Unknown]
  - Syncope [Unknown]
  - Tachycardia [Unknown]
  - Atrial fibrillation [Unknown]
  - Heart rate irregular [Not Recovered/Not Resolved]
  - Bradycardia [Not Recovered/Not Resolved]

NARRATIVE: CASE EVENT DATE: 2008
